FAERS Safety Report 8409561-9 (Version None)
Quarter: 2012Q2

REPORT INFORMATION
  Report Type: 
  Country: None (occurrence: None)
  Receive Date: 20120531
  Receipt Date: 20120531
  Transmission Date: 20120825
  Serious: Yes (Other)
  Sender: FDA-Public Use
  Company Number: None

PATIENT
  Sex: Female

DRUGS (1)
  1. ORENCIA [Suspect]
     Dosage: 125MG QW SQ
     Route: 058
     Dates: start: 20120121, end: 20120425

REACTIONS (5)
  - SOMNOLENCE [None]
  - AMNESIA [None]
  - MOOD SWINGS [None]
  - IRRITABILITY [None]
  - MALAISE [None]
